FAERS Safety Report 5077527-5 (Version None)
Quarter: 2006Q3

REPORT INFORMATION
  Report Type: 
  Country: None (occurrence: None)
  Receive Date: 20060810
  Receipt Date: 20060324
  Transmission Date: 20061208
  Serious: No
  Sender: FDA-Public Use
  Company Number: US-GLAXOSMITHKLINE-A0598966A

PATIENT
  Age: 77 Year
  Sex: Female

DRUGS (1)
  1. PAXIL [Suspect]
     Dosage: 5MG PER DAY
     Route: 048
     Dates: start: 20060310

REACTIONS (6)
  - EAR PAIN [None]
  - ENDODONTIC PROCEDURE [None]
  - LYMPHADENOPATHY [None]
  - TOOTH ABSCESS [None]
  - TOOTH INFECTION [None]
  - TOOTHACHE [None]
